FAERS Safety Report 10381631 (Version 1)
Quarter: 2014Q1

REPORT INFORMATION
  Report Type: Spontaneous
  Country: US (occurrence: None)
  Receive Date: 20140306
  Receipt Date: 20140306
  Transmission Date: 20141002
  Serious: Yes (Other)
  Sender: FDA-Public Use
  Company Number: 163-21880-13023835

PATIENT
  Age: 72 Year
  Sex: Female

DRUGS (4)
  1. REVLIMID [Suspect]
     Indication: PLASMA CELL MYELOMA
     Dosage: 25 MG, 14 IN 14 D, PO
     Route: 048
     Dates: start: 20100708, end: 2011
  2. DEXAMETHASONE (DEXAMETHASONE) (UNKNOWN) [Concomitant]
  3. ZOMETA (ZOLEDRONIC ACID) (UNKNOWN) [Concomitant]
  4. VELCADE (BORTEZOMIB) (UNKNOWN) [Concomitant]

REACTIONS (2)
  - Plasma cell myeloma [None]
  - No therapeutic response [None]
